FAERS Safety Report 9150175 (Version 2)
Quarter: 2013Q4

REPORT INFORMATION
  Report Type: Spontaneous
  Country: US (occurrence: US)
  Receive Date: 20130308
  Receipt Date: 20131221
  Transmission Date: 20140711
  Serious: Yes (Other)
  Sender: FDA-Public Use
  Company Number: PHEH2013US002612

PATIENT
  Age: 56 Year
  Sex: Male

DRUGS (4)
  1. TASIGNA [Suspect]
     Indication: CHRONIC MYELOID LEUKAEMIA
     Dosage: 150 MG, QID
     Route: 048
     Dates: start: 20130128
  2. UROXATRAL [Concomitant]
  3. AVODART [Concomitant]
  4. AMOXICILLIN [Concomitant]

REACTIONS (14)
  - Basal cell carcinoma [Unknown]
  - Dry skin [Unknown]
  - Second primary malignancy [Unknown]
  - Benign prostatic hyperplasia [Unknown]
  - Prostatomegaly [Unknown]
  - Pollakiuria [Unknown]
  - Cardiac flutter [Unknown]
  - Chest discomfort [Unknown]
  - Cataract [Unknown]
  - Muscle contracture [Unknown]
  - Fatigue [Unknown]
  - Headache [Unknown]
  - Constipation [Unknown]
  - Weight decreased [Unknown]
